FAERS Safety Report 11071956 (Version 1)
Quarter: 2015Q2

REPORT INFORMATION
  Report Type: Spontaneous
  Country: US (occurrence: None)
  Receive Date: 20150427
  Receipt Date: 20150427
  Transmission Date: 20150821
  Serious: No
  Sender: FDA-Public Use
  Company Number: None

PATIENT
  Age: 56 Year
  Sex: Female
  Weight: 61.69 kg

DRUGS (8)
  1. LEVAQUIN [Suspect]
     Active Substance: LEVOFLOXACIN
     Indication: KLEBSIELLA INFECTION
     Dosage: 500 ONCE DAILY TAKEN BY MOUTH
     Route: 048
  2. RAPAMUNE [Concomitant]
     Active Substance: SIROLIMUS
  3. CYMBALTA [Concomitant]
     Active Substance: DULOXETINE HYDROCHLORIDE
  4. PRISTIQ EXTENDED RELEASE [Concomitant]
     Active Substance: DESVENLAFAXINE SUCCINATE
  5. HYDROCODONE [Concomitant]
     Active Substance: HYDROCODONE
  6. LEVAQUIN [Suspect]
     Active Substance: LEVOFLOXACIN
     Indication: URINARY TRACT INFECTION
     Dosage: 500 ONCE DAILY TAKEN BY MOUTH
     Route: 048
  7. CELLCEPT [Concomitant]
     Active Substance: MYCOPHENOLATE MOFETIL\MYCOPHENOLATE MOFETIL HYDROCHLORIDE
  8. PRVASATANTIN [Concomitant]

REACTIONS (8)
  - Lip swelling [None]
  - Arthralgia [None]
  - Dysphagia [None]
  - Pain in extremity [None]
  - Stomatitis [None]
  - Chills [None]
  - Dry mouth [None]
  - Pain [None]

NARRATIVE: CASE EVENT DATE: 20150423
